FAERS Safety Report 10156801 (Version 1)
Quarter: 2014Q2

REPORT INFORMATION
  Report Type: Spontaneous
  Country: TR (occurrence: TR)
  Receive Date: 20140507
  Receipt Date: 20140507
  Transmission Date: 20141212
  Serious: Yes (Hospitalization, Other)
  Sender: FDA-Public Use
  Company Number: TR-JNJFOC-20140502851

PATIENT
  Age: 43 Year
  Sex: Female

DRUGS (2)
  1. GOLIMUMAB [Suspect]
     Indication: RHEUMATOID ARTHRITIS
     Route: 058
     Dates: start: 201309, end: 20140426
  2. METHOTREXATE [Concomitant]
     Route: 030
     Dates: start: 2012

REACTIONS (1)
  - Systemic lupus erythematosus [Not Recovered/Not Resolved]
